FAERS Safety Report 8872721 (Version 1)
Quarter: 2012Q4

REPORT INFORMATION
  Report Type: 
  Country: US (occurrence: US)
  Receive Date: 20121026
  Receipt Date: 20121026
  Transmission Date: 20130627
  Serious: No
  Sender: FDA-Public Use
  Company Number: US-AMGEN-USASP2012050990

PATIENT
  Sex: Male
  Weight: 108.84 kg

DRUGS (4)
  1. ENBREL [Suspect]
     Indication: PRODUCT USED FOR UNKNOWN INDICATION
     Dosage: 50 mg, qwk
     Route: 058
  2. IBUPROFEN [Concomitant]
     Dosage: UNK
  3. CLOBEX                             /00012002/ [Concomitant]
     Dosage: 0.05 %, UNK (SPR 0.05%)
  4. MULTI-VIT [Concomitant]
     Dosage: UNK

REACTIONS (1)
  - Injection site bruising [Unknown]
